FAERS Safety Report 6017472-1 (Version None)
Quarter: 2008Q4

REPORT INFORMATION
  Report Type: 
  Country: None (occurrence: None)
  Receive Date: 20081223
  Receipt Date: 20081217
  Transmission Date: 20090506
  Serious: Yes (Other)
  Sender: FDA-Public Use
  Company Number: DE-AVENTIS-200813306DE

PATIENT
  Sex: Male

DRUGS (3)
  1. TAXOTERE [Suspect]
     Indication: METASTATIC GASTRIC CANCER
     Route: 042
  2. FLUOROURACIL [Concomitant]
     Indication: METASTATIC GASTRIC CANCER
     Dosage: DOSE: NOT REPORTED
  3. CARBOPLATIN [Concomitant]
     Indication: METASTATIC GASTRIC CANCER
     Dosage: DOSE: NOT REPORTED

REACTIONS (1)
  - VOCAL CORD PARALYSIS [None]
